FAERS Safety Report 20150005 (Version 2)
Quarter: 2021Q4

REPORT INFORMATION
  Report Type: Report from Study
  Country: GT (occurrence: None)
  Receive Date: 20211206
  Receipt Date: 20211216
  Transmission Date: 20220303
  Serious: Yes (Hospitalization)
  Sender: FDA-Public Use
  Company Number: GT-Merck Healthcare KGaA-9283783

PATIENT
  Age: 3 Year
  Sex: Female

DRUGS (1)
  1. SAIZEN [Suspect]
     Active Substance: SOMATROPIN
     Indication: Product used for unknown indication
     Dates: start: 20201130

REACTIONS (6)
  - Intestinal perforation [Unknown]
  - Parasitic gastroenteritis [Unknown]
  - Gastrointestinal bacterial infection [Unknown]
  - Pyrexia [Unknown]
  - Bacteraemia [Unknown]
  - Loss of consciousness [Unknown]

NARRATIVE: CASE EVENT DATE: 20210101
